FAERS Safety Report 11238092 (Version 3)
Quarter: 2015Q3

REPORT INFORMATION
  Report Type: Spontaneous
  Country: JP (occurrence: JP)
  Receive Date: 20150703
  Receipt Date: 20150909
  Transmission Date: 20151125
  Serious: Yes (Other)
  Sender: FDA-Public Use
  Company Number: JP-ASTRAZENECA-2015SE64374

PATIENT
  Age: 73 Year
  Sex: Female

DRUGS (1)
  1. FASLODEX [Suspect]
     Active Substance: FULVESTRANT
     Dosage: DOSE UNKNOWN
     Route: 030

REACTIONS (4)
  - Asthma [Unknown]
  - Erythema [Unknown]
  - Pruritus [Unknown]
  - Anaphylactoid reaction [Unknown]

NARRATIVE: CASE EVENT DATE: 20150626
